FAERS Safety Report 18016427 (Version 1)
Quarter: 2020Q3

REPORT INFORMATION
  Report Type: Spontaneous
  Country: AT (occurrence: AT)
  Receive Date: 20200713
  Receipt Date: 20200713
  Transmission Date: 20201103
  Serious: Yes (Other)
  Sender: FDA-Public Use
  Company Number: AT-B.I. PHARMACEUTICALS,INC./RIDGEFIELD-2020-12-033851

PATIENT
  Sex: Female
  Weight: 63 kg

DRUGS (6)
  1. IBUPROFEN. [Concomitant]
     Active Substance: IBUPROFEN
     Dosage: 600MG 1 X WEEKLY
     Route: 048
     Dates: start: 2004, end: 20200515
  2. AVONEX [Suspect]
     Active Substance: INTERFERON BETA-1A
     Indication: RELAPSING-REMITTING MULTIPLE SCLEROSIS
     Dosage: AVONEX30MCG WEEKLY
     Route: 065
     Dates: start: 2004, end: 202006
  3. IBUPROFEN. [Concomitant]
     Active Substance: IBUPROFEN
     Indication: PYREXIA
     Dosage: 600 MG 1X WEEKLY
     Route: 065
  4. SIFROL [Suspect]
     Active Substance: PRAMIPEXOLE
     Indication: RESTLESS LEGS SYNDROME
     Route: 048
     Dates: start: 2004, end: 2020
  5. SIFROL [Suspect]
     Active Substance: PRAMIPEXOLE
     Dosage: SIFROL 0,18MG DAILY
     Route: 065
  6. OLEOVIT D3 [Concomitant]
     Active Substance: CHOLECALCIFEROL
     Indication: VITAMIN D DEFICIENCY
     Dosage: 40 DROPS WEEKLY
     Route: 048
     Dates: start: 2004, end: 202006

REACTIONS (2)
  - Colitis ischaemic [Not Recovered/Not Resolved]
  - Irritable bowel syndrome [Not Recovered/Not Resolved]

NARRATIVE: CASE EVENT DATE: 20200515
